FAERS Safety Report 4677514-2 (Version None)
Quarter: 2005Q2

REPORT INFORMATION
  Report Type: 
  Country: None (occurrence: None)
  Receive Date: 20050526
  Receipt Date: 20050526
  Transmission Date: 20051028
  Serious: No
  Sender: FDA-Public Use
  Company Number: None

PATIENT
  Sex: Female

DRUGS (1)
  1. TRIPHASIL-28 [Suspect]
     Indication: CONTRACEPTION
     Dosage: ONE PO Q DAY
     Route: 048

REACTIONS (2)
  - NAUSEA [None]
  - VOMITING [None]
